FAERS Safety Report 7249401-7 (Version None)
Quarter: 2011Q1

REPORT INFORMATION
  Report Type: 
  Country: None (occurrence: None)
  Receive Date: 20110128
  Receipt Date: 20101201
  Transmission Date: 20110831
  Serious: Yes (Hospitalization, Other)
  Sender: FDA-Public Use
  Company Number: US-BAYER-201023034NA

PATIENT
  Sex: Female
  Weight: 73 kg

DRUGS (7)
  1. TUSSIONEX [Concomitant]
     Indication: UPPER RESPIRATORY TRACT INFECTION
     Dosage: UNK
     Dates: start: 20080201
  2. TAMIFLU [Concomitant]
     Dosage: 75 MG, BID
     Route: 048
     Dates: start: 20080202, end: 20080206
  3. ZITHROMAX [Concomitant]
     Indication: UPPER RESPIRATORY TRACT INFECTION
     Dosage: 250 MG, UNK
     Route: 048
     Dates: start: 20080204
  4. ZITHROMAX [Concomitant]
     Dosage: 250 MG, UNK
     Route: 048
     Dates: start: 20080822
  5. TAMIFLU [Concomitant]
     Dosage: 75 MG, BID
     Route: 048
     Dates: start: 20091114, end: 20091118
  6. ROBITUSSIN A C [CODEINE PHOSPHATE,GUAIFENESIN,PHENIRAMINE MALEATE] [Concomitant]
     Indication: UPPER RESPIRATORY TRACT INFECTION
     Dosage: UNK
     Dates: start: 20080201
  7. YAZ [Suspect]
     Indication: CONTRACEPTION
     Dosage: UNK UNK, UNK
     Route: 048
     Dates: start: 20070201, end: 20080301

REACTIONS (15)
  - DYSPHAGIA [None]
  - APHASIA [None]
  - FATIGUE [None]
  - HEADACHE [None]
  - VITREOUS FLOATERS [None]
  - VIITH NERVE PARALYSIS [None]
  - HEMIPARESIS [None]
  - FACIAL PARESIS [None]
  - INSOMNIA [None]
  - DYSKINESIA [None]
  - CEREBROVASCULAR ACCIDENT [None]
  - CAROTID ARTERY DISSECTION [None]
  - DEPRESSION [None]
  - STRESS [None]
  - DYSARTHRIA [None]
